FAERS Safety Report 8006866-0 (Version None)
Quarter: 2011Q4

REPORT INFORMATION
  Report Type: 
  Country: None (occurrence: None)
  Receive Date: 20111227
  Receipt Date: 20111216
  Transmission Date: 20120403
  Serious: Yes (Other)
  Sender: FDA-Public Use
  Company Number: US-BAYER-2011-029241

PATIENT
  Age: 27 Year
  Sex: Female
  Weight: 167.8 kg

DRUGS (7)
  1. DROSPIRENONE AND ETHINYL ESTRADIOL [Suspect]
     Dosage: UNK
     Dates: start: 20050101, end: 20090101
  2. DROSPIRENONE AND ETHINYL ESTRADIOL [Suspect]
     Dosage: UNK
     Dates: start: 20070101, end: 20090101
  3. HEART MEDICATIONS [Concomitant]
  4. ACE INHIBITOR NOS [Concomitant]
  5. NSAID'S [Concomitant]
  6. DIURETICS [Concomitant]
  7. BLOOD PRESSURE MEDICATIONS [Concomitant]

REACTIONS (4)
  - PAIN [None]
  - INJURY [None]
  - CARDIO-RESPIRATORY DISTRESS [None]
  - MYOCARDIAL INFARCTION [None]
